FAERS Safety Report 25851593 (Version 1)
Quarter: 2025Q3

REPORT INFORMATION
  Report Type: Spontaneous
  Country: US (occurrence: US)
  Receive Date: 20250926
  Receipt Date: 20250926
  Transmission Date: 20251021
  Serious: Yes (Hospitalization, Other)
  Sender: CHEPLAPHARM
  Company Number: None

PATIENT
  Age: 56 Year
  Sex: Female
  Weight: 49.9 kg

DRUGS (23)
  1. OLANZAPINE [Suspect]
     Active Substance: OLANZAPINE
     Indication: Psychiatric symptom
     Dosage: NIGHTLY?DAILY DOSE: 5 MILLIGRAM
     Route: 048
     Dates: start: 202408, end: 2024
  2. OLANZAPINE [Suspect]
     Active Substance: OLANZAPINE
     Indication: Affective disorder
     Dosage: NIGHTLY?DAILY DOSE: 5 MILLIGRAM
     Route: 048
     Dates: start: 202408, end: 2024
  3. OLANZAPINE [Suspect]
     Active Substance: OLANZAPINE
     Indication: Depression
     Dosage: NIGHTLY?DAILY DOSE: 5 MILLIGRAM
     Route: 048
     Dates: start: 202408, end: 2024
  4. OLANZAPINE [Suspect]
     Active Substance: OLANZAPINE
     Indication: Psychiatric symptom
  5. OLANZAPINE [Suspect]
     Active Substance: OLANZAPINE
     Indication: Affective disorder
  6. OLANZAPINE [Suspect]
     Active Substance: OLANZAPINE
     Indication: Depression
  7. FLUOXETINE [Suspect]
     Active Substance: FLUOXETINE HYDROCHLORIDE
     Indication: Depression
     Dosage: RESTARTED?DAILY DOSE: 10 MILLIGRAM
     Route: 048
     Dates: start: 202408
  8. FLUOXETINE [Suspect]
     Active Substance: FLUOXETINE HYDROCHLORIDE
     Indication: Affective disorder
     Dosage: RESTARTED?DAILY DOSE: 10 MILLIGRAM
     Route: 048
     Dates: start: 202408
  9. FLUOXETINE [Suspect]
     Active Substance: FLUOXETINE HYDROCHLORIDE
     Indication: Psychiatric symptom
     Dosage: RESTARTED?DAILY DOSE: 10 MILLIGRAM
     Route: 048
     Dates: start: 202408
  10. FLUOXETINE [Suspect]
     Active Substance: FLUOXETINE HYDROCHLORIDE
     Indication: Depression
  11. FLUOXETINE [Suspect]
     Active Substance: FLUOXETINE HYDROCHLORIDE
     Indication: Affective disorder
  12. FLUOXETINE [Suspect]
     Active Substance: FLUOXETINE HYDROCHLORIDE
     Indication: Psychiatric symptom
  13. MIRTAZAPINE [Suspect]
     Active Substance: MIRTAZAPINE
     Indication: Weight gain poor
     Route: 048
     Dates: start: 202408
  14. MIRTAZAPINE [Suspect]
     Active Substance: MIRTAZAPINE
     Indication: Appetite disorder
     Route: 048
     Dates: start: 202408
  15. MIRTAZAPINE [Suspect]
     Active Substance: MIRTAZAPINE
     Indication: Depressed mood
     Route: 048
     Dates: start: 202408
  16. MIRTAZAPINE [Suspect]
     Active Substance: MIRTAZAPINE
     Indication: Weight gain poor
  17. MIRTAZAPINE [Suspect]
     Active Substance: MIRTAZAPINE
     Indication: Appetite disorder
  18. MIRTAZAPINE [Suspect]
     Active Substance: MIRTAZAPINE
     Indication: Depressed mood
  19. VITAMIN C [Concomitant]
     Active Substance: ASCORBIC ACID
  20. VITAMIN D [Concomitant]
     Active Substance: VITAMIN D NOS
  21. VITAMIN B12 [Concomitant]
     Active Substance: CYANOCOBALAMIN
  22. FOLIC ACID [Concomitant]
     Active Substance: FOLIC ACID
  23. THIAMINE [Concomitant]
     Active Substance: THIAMINE

REACTIONS (12)
  - Liver injury [Unknown]
  - Transaminases increased [Recovering/Resolving]
  - Suicidal ideation [Recovered/Resolved]
  - Syncope [Unknown]
  - Malnutrition [Unknown]
  - Hypoglycaemia [Unknown]
  - Fall [Unknown]
  - Hypocalcaemia [Unknown]
  - Decreased appetite [Unknown]
  - Condition aggravated [Unknown]
  - Treatment noncompliance [Unknown]
  - Psychiatric symptom [Unknown]

NARRATIVE: CASE EVENT DATE: 20240801
